FAERS Safety Report 22162710 (Version 1)
Quarter: 2023Q1

REPORT INFORMATION
  Report Type: Report from Study
  Country: IT (occurrence: IT)
  Receive Date: 20230331
  Receipt Date: 20230331
  Transmission Date: 20230418
  Serious: Yes (Other)
  Sender: FDA-Public Use
  Company Number: None

PATIENT
  Age: 54 Year
  Sex: Male

DRUGS (4)
  1. CLOPIDOGREL [Suspect]
     Active Substance: CLOPIDOGREL BISULFATE
     Indication: Product used for unknown indication
     Dosage: FREQUENCY OF ADMINISTRATION: DAILY
     Route: 048
     Dates: start: 20220101
  2. ASPIRIN [Suspect]
     Active Substance: ASPIRIN
     Indication: Product used for unknown indication
     Dosage: FREQUENCY OF ADMINISTRATION: DAILY
     Route: 048
     Dates: start: 20220101
  3. ZOFENOPRIL MYLAN [Concomitant]
     Indication: Product used for unknown indication
  4. ESOMEPRAZOLO DOC [Concomitant]
     Indication: Product used for unknown indication

REACTIONS (4)
  - Abdominal pain upper [Recovering/Resolving]
  - Anaemia [Recovering/Resolving]
  - Vomiting [Unknown]
  - Nausea [Unknown]

NARRATIVE: CASE EVENT DATE: 20221028
